FAERS Safety Report 24254093 (Version 2)
Quarter: 2025Q4

REPORT INFORMATION
  Report Type: Spontaneous
  Country: EU (occurrence: EU)
  Receive Date: 20240827
  Receipt Date: 20251008
  Transmission Date: 20260118
  Serious: Yes (Hospitalization)
  Sender: PFIZER
  Company Number: None

PATIENT
  Age: 57 Year
  Sex: Male

DRUGS (3)
  1. CARBOPLATIN [Suspect]
     Active Substance: CARBOPLATIN
     Indication: Lung adenocarcinoma
     Dosage: 670.45 MG (1ST CYCLE)
     Route: 042
     Dates: start: 20240111
  2. PEMBROLIZUMAB [Suspect]
     Active Substance: PEMBROLIZUMAB
     Indication: Lung adenocarcinoma
     Dosage: 200 MG (1ST CYCLE)
     Route: 042
     Dates: start: 20240111
  3. ALIMTA [Suspect]
     Active Substance: PEMETREXED DISODIUM
     Indication: Lung adenocarcinoma
     Dosage: 950 MG (1ST CYCLE)
     Route: 042
     Dates: start: 20240111

REACTIONS (2)
  - Lupus-like syndrome [Not Recovered/Not Resolved]
  - Cutaneous lupus erythematosus [Recovering/Resolving]

NARRATIVE: CASE EVENT DATE: 20240112
